FAERS Safety Report 9332171 (Version 2)
Quarter: 2013Q2

REPORT INFORMATION
  Report Type: Spontaneous
  Country: US (occurrence: US)
  Receive Date: 20130606
  Receipt Date: 20130614
  Transmission Date: 20140414
  Serious: No
  Sender: FDA-Public Use
  Company Number: US-BIOGENIDEC-2013BI048057

PATIENT
  Age: 43 Year
  Sex: Female

DRUGS (12)
  1. AVONEX [Suspect]
     Indication: MULTIPLE SCLEROSIS
     Route: 030
     Dates: start: 20111201, end: 20130610
  2. AMPYRA [Concomitant]
     Indication: MUSCULOSKELETAL DISORDER
     Route: 048
     Dates: start: 2013
  3. NEURONTIN [Concomitant]
     Indication: MULTIPLE SCLEROSIS
     Route: 048
  4. TIROSINT [Concomitant]
     Indication: HYPOTHYROIDISM
  5. AMITRIPTYLINE [Concomitant]
     Indication: INSOMNIA
     Route: 048
  6. ALLEGRA [Concomitant]
     Indication: SEASONAL ALLERGY
  7. FLONASE [Concomitant]
     Indication: SEASONAL ALLERGY
     Route: 045
  8. VITAMIN D [Concomitant]
     Indication: VITAMIN D DECREASED
  9. VITAMIN B [Concomitant]
     Indication: LABORATORY TEST ABNORMAL
     Route: 058
  10. ASPIRIN [Concomitant]
     Indication: CARDIOVASCULAR EVENT PROPHYLAXIS
     Route: 048
  11. BACLOFEN [Concomitant]
     Indication: BACK PAIN
     Route: 048
  12. BACLOFEN [Concomitant]
     Indication: PAIN
     Route: 048

REACTIONS (13)
  - Injection site atrophy [Not Recovered/Not Resolved]
  - Injection site bruising [Not Recovered/Not Resolved]
  - Musculoskeletal disorder [Not Recovered/Not Resolved]
  - Contusion [Unknown]
  - Injection site warmth [Not Recovered/Not Resolved]
  - Weight bearing difficulty [Not Recovered/Not Resolved]
  - Sensory disturbance [Recovered/Resolved]
  - Migraine [Not Recovered/Not Resolved]
  - Influenza like illness [Recovered/Resolved]
  - Injection site pain [Not Recovered/Not Resolved]
  - Injection site reaction [Not Recovered/Not Resolved]
  - Headache [Not Recovered/Not Resolved]
  - Depression [Recovered/Resolved]
